FAERS Safety Report 5128674-0 (Version None)
Quarter: 2006Q4

REPORT INFORMATION
  Report Type: 
  Country: None (occurrence: None)
  Receive Date: 20061011
  Receipt Date: 20061002
  Transmission Date: 20070319
  Serious: Yes (Other)
  Sender: FDA-Public Use
  Company Number: 163-20785-06100174

PATIENT

DRUGS (2)
  1. THALOMID [Suspect]
     Indication: SARCOMA
     Dosage: 200 - 400MG, DAILY, ORAL
     Route: 048
     Dates: start: 20051020
  2. RADIATION THERAPY EBRT [Concomitant]

REACTIONS (13)
  - ANOREXIA [None]
  - ARRHYTHMIA SUPRAVENTRICULAR [None]
  - COGNITIVE DISORDER [None]
  - DEPRESSION [None]
  - DIARRHOEA [None]
  - FATIGUE [None]
  - INFECTION [None]
  - MOOD ALTERED [None]
  - NODAL ARRHYTHMIA [None]
  - PERIPHERAL SENSORY NEUROPATHY [None]
  - SEROMA [None]
  - SINUS BRADYCARDIA [None]
  - SKIN HYPERPIGMENTATION [None]
